FAERS Safety Report 20248913 (Version 1)
Quarter: 2021Q4

REPORT INFORMATION
  Report Type: Spontaneous
  Country: CA (occurrence: CA)
  Receive Date: 20211229
  Receipt Date: 20211229
  Transmission Date: 20220304
  Serious: Yes (Other)
  Sender: FDA-Public Use
  Company Number: CA-UCBSA-2021060583

PATIENT
  Sex: Female

DRUGS (2)
  1. KEPPRA [Interacting]
     Active Substance: LEVETIRACETAM
     Indication: Product used for unknown indication
     Dosage: 750 MILLILITER, 2X/DAY (BID)
     Route: 048
  2. NOVOCAINE [PROCAINE HYDROCHLORIDE] [Concomitant]
     Indication: Pain
     Dosage: UNK

REACTIONS (7)
  - Hyperacusis [Unknown]
  - Fibromyalgia [Unknown]
  - Intervertebral disc degeneration [Unknown]
  - Drug interaction [Unknown]
  - Pain [Unknown]
  - Off label use [Unknown]
  - Overdose [Unknown]
